FAERS Safety Report 5030515-7 (Version None)
Quarter: 2006Q2

REPORT INFORMATION
  Report Type: 
  Country: None (occurrence: None)
  Receive Date: 20060615
  Receipt Date: 20060602
  Transmission Date: 20061013
  Serious: Yes (Hospitalization)
  Sender: FDA-Public Use
  Company Number: 2006PV014873

PATIENT
  Age: 63 Year
  Sex: Male
  Weight: 95.2554 kg

DRUGS (7)
  1. BYETTA [Suspect]
     Indication: DIABETES MELLITUS NON-INSULIN-DEPENDENT
     Dosage: 5 MCG;BID;SC
     Route: 058
     Dates: start: 20051201
  2. ZOCOR [Suspect]
     Indication: HYPERCHOLESTEROLAEMIA
     Dosage: 10 MG;QD;PO
     Route: 048
     Dates: end: 20060101
  3. GLUCOPHAGE [Concomitant]
  4. GLYBURIDE [Concomitant]
  5. LANTUS [Concomitant]
  6. ACCUPRIL [Concomitant]
  7. DIOVAN [Concomitant]

REACTIONS (7)
  - ASTHENIA [None]
  - DERMATITIS ATOPIC [None]
  - FATIGUE [None]
  - MYOSITIS [None]
  - TREATMENT NONCOMPLIANCE [None]
  - TREMOR [None]
  - URTICARIA [None]
